FAERS Safety Report 5251210-5 (Version None)
Quarter: 2007Q1

REPORT INFORMATION
  Report Type: 
  Country: None (occurrence: None)
  Receive Date: 20070228
  Receipt Date: 20070223
  Transmission Date: 20070707
  Serious: Yes (Life-Threatening)
  Sender: FDA-Public Use
  Company Number: PHRM2007FR00466

PATIENT
  Sex: Male
  Weight: 75 kg

DRUGS (3)
  1. TEGRETOL [Suspect]
     Indication: HYPERAESTHESIA
     Dosage: UNK, UNK
     Route: 048
     Dates: start: 19990101
  2. LAROXYL [Suspect]
     Indication: HYPERAESTHESIA
     Route: 048
  3. DI-ANTALVIC [Concomitant]
     Indication: HYPERAESTHESIA
     Route: 048

REACTIONS (2)
  - ANGIOEDEMA [None]
  - URTICARIA [None]
